FAERS Safety Report 15165741 (Version 2)
Quarter: 2020Q2

REPORT INFORMATION
  Report Type: Report from Study
  Country: US (occurrence: US)
  Receive Date: 20180719
  Receipt Date: 20200406
  Transmission Date: 20200713
  Serious: Yes (Disabling)
  Sender: FDA-Public Use
  Company Number: US-SA-2016SA115351

PATIENT
  Age: 50 Year
  Sex: Female

DRUGS (4)
  1. MULTIVITAMINS [VITAMINS NOS] [Concomitant]
     Active Substance: VITAMINS
     Dosage: UNK
     Dates: start: 2017
  2. TERIFLUNOMIDE. [Suspect]
     Active Substance: TERIFLUNOMIDE
     Indication: MULTIPLE SCLEROSIS
     Dosage: 14 MG,QD
     Route: 048
     Dates: start: 20160501
  3. TERIFLUNOMIDE. [Suspect]
     Active Substance: TERIFLUNOMIDE
     Dosage: 14 MG,QD
     Route: 048
     Dates: start: 201605, end: 20160613
  4. DESVENLAFAXINE. [Concomitant]
     Active Substance: DESVENLAFAXINE
     Indication: DEPRESSION
     Dosage: 50 MG, QD
     Dates: start: 2016

REACTIONS (8)
  - Condition aggravated [Recovering/Resolving]
  - Flushing [Not Recovered/Not Resolved]
  - Neuralgia [Recovering/Resolving]
  - Product dose omission [Unknown]
  - Condition aggravated [Recovering/Resolving]
  - Depression [Unknown]
  - Palpitations [Not Recovered/Not Resolved]
  - Arthralgia [Recovering/Resolving]

NARRATIVE: CASE EVENT DATE: 2016
